FAERS Safety Report 7291472-6 (Version None)
Quarter: 2011Q1

REPORT INFORMATION
  Report Type: 
  Country: None (occurrence: None)
  Receive Date: 20110214
  Receipt Date: 20110203
  Transmission Date: 20110831
  Serious: Yes (Hospitalization)
  Sender: FDA-Public Use
  Company Number: JP-ELI_LILLY_AND_COMPANY-JP201101002256

PATIENT
  Age: 54 Year
  Sex: Male

DRUGS (3)
  1. SEROQUEL [Concomitant]
     Dosage: 300 MG, DAILY (1/D)
     Route: 048
     Dates: end: 20110105
  2. ZYPREXA [Suspect]
     Dosage: 20 MG, DAILY (1/D)
     Route: 048
     Dates: end: 20110105
  3. RISPERDAL [Concomitant]
     Dosage: 8 MG, DAILY (1/D)
     Route: 048
     Dates: end: 20110105

REACTIONS (4)
  - BLOOD INSULIN INCREASED [None]
  - HYPOGLYCAEMIA [None]
  - HYPERKALAEMIA [None]
  - PNEUMONIA [None]
